FAERS Safety Report 12730640 (Version 1)
Quarter: 2016Q3

REPORT INFORMATION
  Report Type: Spontaneous
  Country: US (occurrence: US)
  Receive Date: 20160910
  Receipt Date: 20160910
  Transmission Date: 20161109
  Serious: Yes (Death, Hospitalization, Other)
  Sender: FDA-Public Use
  Company Number: US-AMGEN-USASP2016120434

PATIENT
  Sex: Male

DRUGS (1)
  1. PROLIA [Suspect]
     Active Substance: DENOSUMAB
     Indication: PRODUCT USED FOR UNKNOWN INDICATION
     Dosage: UNK
     Route: 065

REACTIONS (8)
  - Malaise [Unknown]
  - Dysphonia [Unknown]
  - Blood calcium decreased [Recovering/Resolving]
  - Neck pain [Unknown]
  - Fall [Fatal]
  - Gait disturbance [Unknown]
  - Musculoskeletal pain [Unknown]
  - Dyspnoea [Unknown]
